FAERS Safety Report 4745762-9 (Version None)
Quarter: 2005Q3

REPORT INFORMATION
  Report Type: 
  Country: None (occurrence: None)
  Receive Date: 20050816
  Receipt Date: 20050330
  Transmission Date: 20060218
  Serious: Yes (Hospitalization)
  Sender: FDA-Public Use
  Company Number: AU-BRISTOL-MYERS SQUIBB COMPANY-12914420

PATIENT
  Age: 77 Year
  Sex: Male

DRUGS (1)
  1. AVAPRO [Suspect]
     Dosage: ON THERAPY FOR ABOUT 2 YEARS

REACTIONS (2)
  - PYREXIA [None]
  - VASCULITIS [None]
